FAERS Safety Report 11868220 (Version 11)
Quarter: 2020Q2

REPORT INFORMATION
  Report Type: Spontaneous
  Country: US (occurrence: US)
  Receive Date: 20151224
  Receipt Date: 20200505
  Transmission Date: 20200713
  Serious: Yes (Hospitalization, Other)
  Sender: FDA-Public Use
  Company Number: US-JAZZ-JPI-P-014259

PATIENT
  Age: 49 Year
  Sex: Male

DRUGS (6)
  1. XYREM [Suspect]
     Active Substance: SODIUM OXYBATE
     Dosage: 3 G, BID
     Route: 048
     Dates: start: 20110222
  2. XYREM [Suspect]
     Active Substance: SODIUM OXYBATE
     Indication: NARCOLEPSY
     Dosage: 2.25 G, BID
     Route: 048
     Dates: start: 20091106, end: 20091126
  3. XYREM [Suspect]
     Active Substance: SODIUM OXYBATE
     Dosage: 3 G, BID
     Route: 048
     Dates: start: 20091127, end: 20110218
  4. OXYCODONE HYDROCHLORIDE. [Suspect]
     Active Substance: OXYCODONE HYDROCHLORIDE
     Indication: PRODUCT USED FOR UNKNOWN INDICATION
  5. DEPAKOTE [Suspect]
     Active Substance: DIVALPROEX SODIUM
     Indication: MIGRAINE
  6. ROBAXIN [Suspect]
     Active Substance: METHOCARBAMOL
     Indication: PRODUCT USED FOR UNKNOWN INDICATION

REACTIONS (16)
  - Middle ear effusion [Unknown]
  - Vomiting projectile [Unknown]
  - Energy increased [Unknown]
  - Ligament sprain [Unknown]
  - Weight decreased [Unknown]
  - Post procedural complication [Recovering/Resolving]
  - Intervertebral disc protrusion [Recovering/Resolving]
  - Tooth fracture [Unknown]
  - Scoliosis [Not Recovered/Not Resolved]
  - Road traffic accident [Recovered/Resolved]
  - Nerve compression [Unknown]
  - Intervertebral disc degeneration [Not Recovered/Not Resolved]
  - Migraine [Recovered/Resolved]
  - Hallucination [Unknown]
  - Spinal fusion surgery [Unknown]
  - Post-traumatic neck syndrome [Unknown]

NARRATIVE: CASE EVENT DATE: 20101211
